FAERS Safety Report 12714810 (Version 1)
Quarter: 2016Q3

REPORT INFORMATION
  Report Type: Spontaneous
  Country: US (occurrence: US)
  Receive Date: 20160905
  Receipt Date: 20160905
  Transmission Date: 20161109
  Serious: Yes (Other)
  Sender: FDA-Public Use
  Company Number: US-PFIZER INC-2016416820

PATIENT
  Age: 39 Year
  Sex: Female

DRUGS (1)
  1. XELJANZ [Suspect]
     Active Substance: TOFACITINIB CITRATE
     Indication: RHEUMATOID ARTHRITIS
     Dosage: 5 MG, UNK

REACTIONS (36)
  - Erythema [Unknown]
  - Dizziness [Unknown]
  - Night sweats [Unknown]
  - Irritability [Unknown]
  - Depression [Unknown]
  - Nausea [Unknown]
  - Tinnitus [Unknown]
  - Alopecia [Unknown]
  - Insomnia [Unknown]
  - Dry skin [Unknown]
  - Headache [Unknown]
  - Fatigue [Unknown]
  - Dyspnoea [Unknown]
  - Pollakiuria [Unknown]
  - Muscular weakness [Unknown]
  - Amnesia [Unknown]
  - Eye pruritus [Unknown]
  - Hypertension [Unknown]
  - Peripheral swelling [Unknown]
  - Arthralgia [Unknown]
  - Anosmia [Unknown]
  - Myalgia [Unknown]
  - Contusion [Unknown]
  - Muscle spasms [Unknown]
  - Muscle tightness [Unknown]
  - Deafness [Unknown]
  - Tremor [Unknown]
  - Glossodynia [Unknown]
  - Heart rate irregular [Unknown]
  - Infection susceptibility increased [Unknown]
  - Weight decreased [Unknown]
  - Musculoskeletal stiffness [Unknown]
  - Joint swelling [Unknown]
  - Asthenia [Unknown]
  - Chest pain [Unknown]
  - Agitation [Unknown]
